FAERS Safety Report 10821076 (Version 5)
Quarter: 2016Q1

REPORT INFORMATION
  Report Type: Report from Study
  Country: CA (occurrence: CA)
  Receive Date: 20150218
  Receipt Date: 20160203
  Transmission Date: 20160525
  Serious: Yes (Hospitalization)
  Sender: FDA-Public Use
  Company Number: CA-ABBVIE-15K-028-1346355-00

PATIENT
  Age: 48 Year
  Sex: Male

DRUGS (1)
  1. HUMIRA [Suspect]
     Active Substance: ADALIMUMAB
     Indication: CROHN^S DISEASE
     Route: 058
     Dates: start: 20140812, end: 201601

REACTIONS (7)
  - Nephrolithiasis [Recovered/Resolved]
  - Ureterolithiasis [Unknown]
  - Nephrolithiasis [Recovering/Resolving]
  - Ureteric obstruction [Not Recovered/Not Resolved]
  - Urinary tract infection [Unknown]
  - Kidney infection [Not Recovered/Not Resolved]
  - Nephrolithiasis [Not Recovered/Not Resolved]

NARRATIVE: CASE EVENT DATE: 20150206
